FAERS Safety Report 4773821-3 (Version None)
Quarter: 2005Q3

REPORT INFORMATION
  Report Type: 
  Country: None (occurrence: None)
  Receive Date: 20050920
  Receipt Date: 20050524
  Transmission Date: 20060218
  Serious: Yes (Other)
  Sender: FDA-Public Use
  Company Number: GB-GLAXOSMITHKLINE-B0382113A

PATIENT
  Age: 11 Year
  Sex: Female
  Weight: 108.4 kg

DRUGS (4)
  1. LAMICTAL [Suspect]
     Indication: EPILEPSY
     Dosage: 100MG TWICE PER DAY
     Route: 065
     Dates: start: 20021004
  2. TOPIRAMATE [Suspect]
     Indication: EPILEPSY
     Dosage: 300MG TWICE PER DAY
     Route: 065
     Dates: start: 20031120
  3. BRICANYL [Concomitant]
     Route: 055
  4. BUDESONIDE [Concomitant]
     Route: 055

REACTIONS (7)
  - AGGRESSION [None]
  - BALANCE DISORDER [None]
  - CONFUSIONAL STATE [None]
  - HEADACHE [None]
  - INSOMNIA [None]
  - PHARYNGOLARYNGEAL PAIN [None]
  - WEIGHT INCREASED [None]
